FAERS Safety Report 15781402 (Version 1)
Quarter: 2019Q1

REPORT INFORMATION
  Report Type: Spontaneous
  Country: US (occurrence: US)
  Receive Date: 20190101
  Receipt Date: 20190101
  Transmission Date: 20190417
  Serious: Yes (Other)
  Sender: FDA-Public Use
  Company Number: None

PATIENT
  Age: 48 Year
  Sex: Female
  Weight: 72.9 kg

DRUGS (7)
  1. ORTHO-NOVUM 7/7/7-28 [Suspect]
     Active Substance: ETHINYL ESTRADIOL\NORETHINDRONE
     Indication: CONTRACEPTION
     Dosage: ?          QUANTITY:1 TABLET(S);?
     Route: 048
     Dates: start: 20180909, end: 20181110
  2. CALCIUM [Concomitant]
     Active Substance: CALCIUM
  3. ASPIRIN 81MG DAILY [Concomitant]
  4. FOLIC ACID 1MG DAILY [Concomitant]
  5. METOPROLOL 50MG DAILY [Concomitant]
  6. METHOTREXATE 15MG WEEKLY [Concomitant]
  7. VITAMIN D [Concomitant]
     Active Substance: CHOLECALCIFEROL

REACTIONS (4)
  - Recalled product [None]
  - Headache [None]
  - Metrorrhagia [None]
  - Hypertension [None]

NARRATIVE: CASE EVENT DATE: 20180913
